FAERS Safety Report 18174895 (Version 1)
Quarter: 2020Q3

REPORT INFORMATION
  Report Type: Spontaneous
  Country: US (occurrence: US)
  Receive Date: 20200820
  Receipt Date: 20200820
  Transmission Date: 20201103
  Serious: No
  Sender: FDA-Public Use
  Company Number: US-009507513-2008USA010363

PATIENT
  Sex: Female

DRUGS (1)
  1. NEXPLANON [Suspect]
     Active Substance: ETONOGESTREL
     Indication: CONTRACEPTION
     Dosage: 1 IMPLANT, DOSE REPORTED AS 68 MILLIGRAM, FREQUENCY REPORTED AS ONCE
     Route: 059
     Dates: start: 20200425, end: 2020

REACTIONS (2)
  - Swelling [Unknown]
  - Weight increased [Unknown]

NARRATIVE: CASE EVENT DATE: 2020
